FAERS Safety Report 7367210-5 (Version None)
Quarter: 2011Q1

REPORT INFORMATION
  Report Type: 
  Country: None (occurrence: None)
  Receive Date: 20110322
  Receipt Date: 20110318
  Transmission Date: 20110831
  Serious: Yes (Hospitalization, Other)
  Sender: FDA-Public Use
  Company Number: JP-PFIZER INC-2011051231

PATIENT
  Age: 77 Year

DRUGS (1)
  1. CADUET [Suspect]
     Dosage: UNK
     Route: 048
     Dates: start: 20110201

REACTIONS (2)
  - HEPATIC NEOPLASM MALIGNANT [None]
  - HEPATITIS ACUTE [None]
